FAERS Safety Report 5193583-8 (Version None)
Quarter: 2006Q4

REPORT INFORMATION
  Report Type: 
  Country: None (occurrence: None)
  Receive Date: 20061228
  Receipt Date: 20060918
  Transmission Date: 20070319
  Serious: No
  Sender: FDA-Public Use
  Company Number: US-GLAXOSMITHKLINE-A0620525A

PATIENT
  Sex: Female

DRUGS (2)
  1. FLONASE [Suspect]
     Dosage: 1SPR TWICE PER DAY
     Route: 045
  2. NO CONCURRENT MEDICATION [Concomitant]

REACTIONS (3)
  - COUGH [None]
  - DYSPNOEA [None]
  - SENSATION OF FOREIGN BODY [None]
